FAERS Safety Report 16439672 (Version 1)
Quarter: 2019Q2

REPORT INFORMATION
  Report Type: Spontaneous
  Country: US (occurrence: US)
  Receive Date: 20190617
  Receipt Date: 20190617
  Transmission Date: 20190711
  Serious: No
  Sender: FDA-Public Use
  Company Number: US-BAYER-2019-113796

PATIENT

DRUGS (3)
  1. RAPAMUNE [Concomitant]
     Active Substance: SIROLIMUS
     Dosage: 0.2 MG, QD
     Route: 048
  2. CLARITIN-D NOS [Suspect]
     Active Substance: LORATADINE\PSEUDOEPHEDRINE SULFATE
     Dosage: UNK
  3. ZITHROMAX [Concomitant]
     Active Substance: AZITHROMYCIN DIHYDRATE
     Dosage: 1 DF, QD
     Route: 048

REACTIONS (2)
  - Drug hypersensitivity [Unknown]
  - Palpitations [Unknown]

NARRATIVE: CASE EVENT DATE: 20151223
